FAERS Safety Report 13981156 (Version 1)
Quarter: 2017Q3

REPORT INFORMATION
  Report Type: Spontaneous
  Country: US (occurrence: US)
  Receive Date: 20170915
  Receipt Date: 20170915
  Transmission Date: 20171128
  Serious: No
  Sender: FDA-Public Use
  Company Number: None

PATIENT
  Age: 4 Day
  Sex: Male

DRUGS (1)
  1. DEXMEDETOMIDINE. [Suspect]
     Active Substance: DEXMEDETOMIDINE
     Indication: ANALGESIC THERAPY
     Dates: start: 20170602, end: 20170604

REACTIONS (1)
  - Hypotension [None]

NARRATIVE: CASE EVENT DATE: 20170603
